FAERS Safety Report 8560012-3 (Version None)
Quarter: 2012Q3

REPORT INFORMATION
  Report Type: 
  Country: None (occurrence: None)
  Receive Date: 20120723
  Receipt Date: 20120531
  Transmission Date: 20120928
  Serious: Yes (Death)
  Sender: FDA-Public Use
  Company Number: BR-20120027

PATIENT
  Age: 77 Year
  Sex: Male

DRUGS (4)
  1. HEABRIX 320 (IOLAGLIC ACID) [Suspect]
     Indication: CATHETERISATION CARDIAC
     Dosage: (1 IN 1 TOTAL)
  2. HEPARIH(HEPARIN)(IFEPARIN) [Concomitant]
  3. XYLOCAINE [Concomitant]
  4. MOGOCORDIL (ISOSORBIDE MONONITRATE)(ISOSORBIDE MONONITRATE) [Concomitant]

REACTIONS (4)
  - PARAESTHESIA [None]
  - CARDIO-RESPIRATORY ARREST [None]
  - ERYTHEMA [None]
  - ANAPHYLACTIC SHOCK [None]
